FAERS Safety Report 8418184-7 (Version None)
Quarter: 2012Q2

REPORT INFORMATION
  Report Type: 
  Country: None (occurrence: None)
  Receive Date: 20120607
  Receipt Date: 20120529
  Transmission Date: 20120825
  Serious: Yes (Hospitalization)
  Sender: FDA-Public Use
  Company Number: JP-VERTEX PHARMACEUTICALS INC.-AE-2012-008091

PATIENT
  Age: 56 Year
  Sex: Male

DRUGS (13)
  1. TELAVIC (TELAPREVIR) [Suspect]
     Route: 048
     Dates: start: 20120223, end: 20120227
  2. PEG-INTRON [Concomitant]
     Route: 058
     Dates: start: 20120417
  3. TELAVIC (TELAPREVIR) [Suspect]
     Indication: HEPATITIS C
     Route: 048
     Dates: start: 20120221, end: 20120222
  4. REBETOL [Concomitant]
     Route: 048
     Dates: start: 20120426
  5. REBETOL [Concomitant]
     Route: 048
     Dates: start: 20120424, end: 20120425
  6. TELAVIC (TELAPREVIR) [Suspect]
     Route: 048
     Dates: start: 20120424, end: 20120425
  7. TELAVIC (TELAPREVIR) [Suspect]
     Route: 048
     Dates: start: 20120228, end: 20120301
  8. PEG-INTRON [Concomitant]
     Indication: HEPATITIS C
     Route: 058
     Dates: start: 20120221
  9. TELAVIC (TELAPREVIR) [Suspect]
     Route: 048
     Dates: start: 20120302
  10. TELAVIC (TELAPREVIR) [Suspect]
     Route: 048
     Dates: start: 20120426
  11. REBETOL [Concomitant]
     Indication: HEPATITIS C
     Route: 048
     Dates: start: 20120327
  12. REBETOL [Concomitant]
     Route: 048
     Dates: start: 20120221, end: 20120321
  13. REBETOL [Concomitant]
     Route: 048
     Dates: start: 20120322, end: 20120326

REACTIONS (1)
  - DEPRESSIVE SYMPTOM [None]
